FAERS Safety Report 8788767 (Version 3)
Quarter: 2013Q4

REPORT INFORMATION
  Report Type: Spontaneous
  Country: AU (occurrence: AU)
  Receive Date: 20120917
  Receipt Date: 20131028
  Transmission Date: 20140711
  Serious: No
  Sender: FDA-Public Use
  Company Number: AU-JNJFOC-20120903036

PATIENT
  Age: 39 Year
  Sex: Female

DRUGS (1)
  1. DUROGESIC [Suspect]
     Indication: MUSCULOSKELETAL PAIN
     Route: 062

REACTIONS (3)
  - Drug ineffective [Unknown]
  - Product quality issue [Unknown]
  - Wrong technique in drug usage process [Unknown]
